FAERS Safety Report 7335379-4 (Version None)
Quarter: 2011Q1

REPORT INFORMATION
  Report Type: 
  Country: None (occurrence: None)
  Receive Date: 20110307
  Receipt Date: 20110222
  Transmission Date: 20110831
  Serious: Yes (Hospitalization)
  Sender: FDA-Public Use
  Company Number: US-ELI_LILLY_AND_COMPANY-US201102007668

PATIENT
  Sex: Male
  Weight: 143 kg

DRUGS (8)
  1. PRASUGREL HYDROCHLORIDE [Suspect]
     Indication: ACUTE CORONARY SYNDROME
     Dosage: 60 MG, ONCE
     Dates: start: 20100811, end: 20100811
  2. PRASUGREL HYDROCHLORIDE [Suspect]
     Dosage: 10 MG, DAILY (1/D)
     Dates: start: 20100811
  3. PEPCID [Concomitant]
     Indication: GASTROOESOPHAGEAL REFLUX DISEASE
     Dosage: 40 MG, DAILY (1/D)
     Route: 048
     Dates: start: 20000101
  4. ASPIRIN [Concomitant]
     Dosage: 325 MG, DAILY (1/D)
  5. ZOCOR [Concomitant]
     Indication: BLOOD CHOLESTEROL
     Dosage: 40 MG, DAILY (1/D)
     Route: 048
     Dates: start: 19980101
  6. DEPAKOTE [Concomitant]
     Indication: CONVULSION
     Dosage: 500 MG, 2/D
     Route: 048
     Dates: start: 20080101
  7. CELEXA [Concomitant]
     Indication: DEPRESSION
     Dosage: 40 MG, DAILY (1/D)
     Route: 048
     Dates: start: 20000101
  8. IMDUR [Concomitant]
     Indication: ANGINA PECTORIS
     Dosage: 60 MG, DAILY (1/D)
     Route: 048
     Dates: start: 20020101

REACTIONS (1)
  - CHEST PAIN [None]
